FAERS Safety Report 9799107 (Version 2)
Quarter: 2014Q1

REPORT INFORMATION
  Report Type: Spontaneous
  Country: US (occurrence: US)
  Receive Date: 20140106
  Receipt Date: 20140106
  Transmission Date: 20141002
  Serious: No
  Sender: FDA-Public Use
  Company Number: US-GILEAD-2010-0032386

PATIENT
  Sex: Female

DRUGS (5)
  1. LETAIRIS [Suspect]
     Indication: PULMONARY ARTERIAL HYPERTENSION
     Route: 048
     Dates: start: 20100128
  2. VERAPAMIL [Concomitant]
  3. VITAMIN B12 [Concomitant]
  4. IRON [Concomitant]
  5. FOLIC ACID [Concomitant]

REACTIONS (1)
  - No therapeutic response [Unknown]
